FAERS Safety Report 15010778 (Version 1)
Quarter: 2018Q2

REPORT INFORMATION
  Report Type: Other
  Country: IT (occurrence: IT)
  Receive Date: 20180614
  Receipt Date: 20180614
  Transmission Date: 20180711
  Serious: Yes (Other)
  Sender: FDA-Public Use
  Company Number: IT-APOTEX-2018AP015629

PATIENT
  Age: 18 Year
  Sex: Female

DRUGS (2)
  1. QUETIAPINE. [Suspect]
     Active Substance: QUETIAPINE
     Indication: ACUTE PSYCHOSIS
     Dosage: UNK
     Route: 048
     Dates: start: 20170101, end: 20171117
  2. RISPERIDONE. [Suspect]
     Active Substance: RISPERIDONE
     Indication: ACUTE PSYCHOSIS
     Dosage: UNK
     Route: 048
     Dates: start: 20170101, end: 20171117

REACTIONS (2)
  - Nystagmus [Unknown]
  - Dyskinesia [Unknown]

NARRATIVE: CASE EVENT DATE: 20171117
